FAERS Safety Report 6921767-4 (Version None)
Quarter: 2010Q3

REPORT INFORMATION
  Report Type: 
  Country: None (occurrence: None)
  Receive Date: 20100812
  Receipt Date: 20100802
  Transmission Date: 20110219
  Serious: Yes (Death)
  Sender: FDA-Public Use
  Company Number: HQWYE056601JUN05

PATIENT
  Sex: Male

DRUGS (13)
  1. EFFEXOR [Suspect]
  2. HYOSCYAMINE [Concomitant]
     Route: 065
  3. FUROSEMIDE [Concomitant]
     Route: 065
  4. NITROGLYCERIN [Concomitant]
     Route: 065
  5. SPIRONOLACTONE [Concomitant]
     Route: 065
  6. POTASSIUM CHLORIDE [Concomitant]
     Route: 065
  7. LANSOPRAZOLE [Concomitant]
     Route: 065
  8. CAPTOPRIL [Concomitant]
     Route: 065
  9. THEOPHYLLINE [Concomitant]
     Route: 065
  10. DIGOXIN [Concomitant]
     Route: 065
  11. GUAIFENESIN/PHENYLEPHRINE HYDROCHLORIDE/PHENYLPROPANOLAMINE HYDROCHLOR [Concomitant]
     Dosage: 30-600 MG TWICE DAILY
     Route: 065
  12. AMIODARONE [Concomitant]
     Route: 065
  13. SIMVASTATIN [Concomitant]
     Route: 065

REACTIONS (1)
  - COMPLETED SUICIDE [None]
